FAERS Safety Report 12530598 (Version 6)
Quarter: 2016Q4

REPORT INFORMATION
  Report Type: Spontaneous
  Country: US (occurrence: US)
  Receive Date: 20160706
  Receipt Date: 20161207
  Transmission Date: 20170207
  Serious: Yes (Other)
  Sender: FDA-Public Use
  Company Number: US-GLAXOSMITHKLINE-US2016GSK088833

PATIENT
  Age: 50 Year
  Sex: Female

DRUGS (3)
  1. BENLYSTA [Suspect]
     Active Substance: BELIMUMAB
     Indication: SYSTEMIC LUPUS ERYTHEMATOSUS
     Dosage: UNK
  2. ASPIRIN (BABY) [Concomitant]
     Active Substance: ASPIRIN
  3. LEVOTHYROXINE. [Concomitant]
     Active Substance: LEVOTHYROXINE

REACTIONS (5)
  - Gallbladder operation [Recovering/Resolving]
  - Cholecystectomy [Recovering/Resolving]
  - Malaise [Unknown]
  - Drug dose omission [Unknown]
  - Arthropathy [Unknown]

NARRATIVE: CASE EVENT DATE: 20161116
